FAERS Safety Report 5166290-5 (Version None)
Quarter: 2006Q4

REPORT INFORMATION
  Report Type: 
  Country: None (occurrence: None)
  Receive Date: 20061124
  Receipt Date: 20061116
  Transmission Date: 20070319
  Serious: Yes (Hospitalization)
  Sender: FDA-Public Use
  Company Number: US018595

PATIENT
  Age: 73 Year
  Sex: Male
  Weight: 79.8331 kg

DRUGS (2)
  1. PROVIGIL [Suspect]
     Indication: NARCOLEPSY
     Dosage: 200 MG QD ORAL
     Route: 048
     Dates: start: 20060607, end: 20061006
  2. SYNTHROID [Concomitant]

REACTIONS (3)
  - ATRIAL SEPTAL DEFECT [None]
  - BRADYCARDIA [None]
  - DIZZINESS [None]
